FAERS Safety Report 6340685-6 (Version None)
Quarter: 2009Q3

REPORT INFORMATION
  Report Type: 
  Country: None (occurrence: None)
  Receive Date: 20090902
  Receipt Date: 20090902
  Transmission Date: 20100115
  Serious: No
  Sender: FDA-Public Use
  Company Number: None

PATIENT
  Age: 56 Year
  Sex: Female
  Weight: 74.3899 kg

DRUGS (1)
  1. LATISSE [Suspect]
     Indication: MIGRAINE
     Dosage: ONE DROP PER UPPER EYELID ONCE NIGHTLY
     Dates: start: 20090720, end: 20090829

REACTIONS (1)
  - MIGRAINE [None]
